FAERS Safety Report 7802096-3 (Version None)
Quarter: 2011Q4

REPORT INFORMATION
  Report Type: 
  Country: None (occurrence: None)
  Receive Date: 20111007
  Receipt Date: 20110922
  Transmission Date: 20120403
  Serious: Yes (Other)
  Sender: FDA-Public Use
  Company Number: PHHY2011BR84948

PATIENT
  Sex: Female

DRUGS (3)
  1. GALVUS [Concomitant]
     Indication: DIABETES MELLITUS
     Dosage: 50 MG, UNK
     Dates: start: 20080101
  2. DIOVAN [Suspect]
     Indication: HYPERTENSION
     Dosage: 1 DF, AFTER BREAKFAST
     Route: 048
  3. GLUCOFORMIN [Concomitant]
     Indication: DIABETES MELLITUS
     Route: 048
     Dates: start: 20080101

REACTIONS (4)
  - SYNCOPE [None]
  - MALAISE [None]
  - BREAST CANCER [None]
  - BLOOD PRESSURE SYSTOLIC DECREASED [None]
